FAERS Safety Report 5022361-5 (Version None)
Quarter: 2006Q2

REPORT INFORMATION
  Report Type: 
  Country: None (occurrence: None)
  Receive Date: 20060609
  Receipt Date: 20060210
  Transmission Date: 20061013
  Serious: Yes (Other)
  Sender: FDA-Public Use
  Company Number: PHEH2006US02035

PATIENT
  Age: 77 Year
  Sex: Female

DRUGS (7)
  1. ZOMETA [Suspect]
     Indication: MULTIPLE MYELOMA
     Dosage: EVERY 2 TO 3 MONTHS
     Dates: start: 20000101, end: 20050801
  2. ALKERAN [Concomitant]
  3. PREDNISONE [Concomitant]
  4. THALIDOMIDE [Concomitant]
  5. VELCADE [Concomitant]
  6. DEXAMETHASONE TAB [Concomitant]
  7. ANALGESICS [Concomitant]
     Indication: BONE PAIN

REACTIONS (10)
  - ATRIAL SEPTAL DEFECT [None]
  - BONE DEBRIDEMENT [None]
  - BONE DISORDER [None]
  - BONE PAIN [None]
  - GINGIVAL INFECTION [None]
  - GINGIVAL SWELLING [None]
  - GINGIVITIS [None]
  - MALIGNANT NEOPLASM PROGRESSION [None]
  - OSTEONECROSIS [None]
  - PAIN IN JAW [None]
